FAERS Safety Report 22035154 (Version 1)
Quarter: 2023Q1

REPORT INFORMATION
  Report Type: Spontaneous
  Country: CR (occurrence: CR)
  Receive Date: 20230224
  Receipt Date: 20230224
  Transmission Date: 20230418
  Serious: Yes (Other)
  Sender: FDA-Public Use
  Company Number: CR-002147023-NVSC2023CR022382

PATIENT
  Sex: Female
  Weight: 62 kg

DRUGS (4)
  1. EXELON [Suspect]
     Active Substance: RIVASTIGMINE TARTRATE
     Indication: Dementia Alzheimer^s type
     Dosage: 9.5 MG, QD PATCH 10 (CM2), (24HR, PATCH 10)
     Route: 003
  2. EXELON [Suspect]
     Active Substance: RIVASTIGMINE TARTRATE
     Indication: Dementia
     Dosage: 4.6 MG, QD PATCH 5 (CM2), (24HR, PATCH 5)
     Route: 003
  3. DIOVAN [Suspect]
     Active Substance: VALSARTAN
     Indication: Hypertension
     Dosage: 80 MG, QD (1 TABLET A DAY) (START DATE: APPROXIMATELY 15 YEARS AGO)
     Route: 048
  4. VASTAREL [Concomitant]
     Active Substance: TRIMETAZIDINE DIHYDROCHLORIDE
     Indication: Product used for unknown indication
     Dosage: 1 DOSAGE FORM, AT NIGHT (APPROXIMATELY 15 YEARS AGO)
     Route: 065

REACTIONS (3)
  - Dementia [Unknown]
  - Pruritus [Unknown]
  - Drug ineffective [Unknown]
